FAERS Safety Report 14133907 (Version 2)
Quarter: 2017Q4

REPORT INFORMATION
  Report Type: Spontaneous
  Country: US (occurrence: US)
  Receive Date: 20171027
  Receipt Date: 20171120
  Transmission Date: 20180321
  Serious: No
  Sender: FDA-Public Use
  Company Number: US-PFIZER INC-2017463085

PATIENT
  Age: 37 Year
  Sex: Female
  Weight: 89.81 kg

DRUGS (1)
  1. FLUCONAZOLE. [Suspect]
     Active Substance: FLUCONAZOLE
     Indication: FUNGAL INFECTION
     Dosage: 1 DF, ONCE
     Route: 048
     Dates: start: 20170923

REACTIONS (6)
  - Skin exfoliation [Recovered/Resolved]
  - Pruritus [Recovering/Resolving]
  - Blister [Recovered/Resolved with Sequelae]
  - Skin discolouration [Not Recovered/Not Resolved]
  - Burning sensation [Recovering/Resolving]
  - Urticaria [Recovered/Resolved with Sequelae]

NARRATIVE: CASE EVENT DATE: 201709
